FAERS Safety Report 7607231-8 (Version None)
Quarter: 2011Q3

REPORT INFORMATION
  Report Type: 
  Country: None (occurrence: None)
  Receive Date: 20110712
  Receipt Date: 20110712
  Transmission Date: 20111222
  Serious: Yes (Hospitalization)
  Sender: FDA-Public Use
  Company Number: None

PATIENT
  Age: 55 Year
  Sex: Male
  Weight: 125.2 kg

DRUGS (2)
  1. METOLAZONE [Suspect]
     Dosage: 2.5 MG EVERY DAY PO
     Route: 048
     Dates: start: 20110223, end: 20110518
  2. CARVEDILOL [Suspect]
     Dosage: 50 MG BID PO
     Route: 048
     Dates: start: 20110512, end: 20110518

REACTIONS (3)
  - HYPOTENSION [None]
  - HYPOGLYCAEMIA [None]
  - RENAL FAILURE ACUTE [None]
